FAERS Safety Report 6132495-X (Version None)
Quarter: 2009Q1

REPORT INFORMATION
  Report Type: 
  Country: None (occurrence: None)
  Receive Date: 20090324
  Receipt Date: 20090312
  Transmission Date: 20090719
  Serious: Yes (Hospitalization)
  Sender: FDA-Public Use
  Company Number: 2009AP001058

PATIENT
  Age: 48 Year
  Sex: Male

DRUGS (3)
  1. CARBAMAZEPINE [Suspect]
     Indication: EPILEPSY
     Dosage: 600 MG; BID; PO; 300 MG; BID PO
     Route: 048
     Dates: start: 20090121
  2. ALLOPURINOL [Suspect]
     Indication: HYPERURICAEMIA
     Dosage: 150 MG, QD; PO
     Route: 048
  3. SIMVASTATIN [Suspect]
     Indication: HYPERCHOLESTEROLAEMIA
     Dosage: 20 MG; QD; PO
     Route: 048

REACTIONS (9)
  - ANXIETY [None]
  - BLOOD FIBRINOGEN INCREASED [None]
  - BRONCHOPNEUMONIA [None]
  - DRUG LEVEL INCREASED [None]
  - HAEMOGLOBIN DECREASED [None]
  - HYPOKALAEMIA [None]
  - HYPONATRAEMIA [None]
  - NAUSEA [None]
  - PERSONALITY CHANGE [None]
